FAERS Safety Report 7950276-9 (Version None)
Quarter: 2011Q4

REPORT INFORMATION
  Report Type: 
  Country: None (occurrence: None)
  Receive Date: 20111130
  Receipt Date: 20111121
  Transmission Date: 20120403
  Serious: Yes (Other)
  Sender: FDA-Public Use
  Company Number: US-ASTRAZENECA-2011SE64471

PATIENT
  Age: 54 Year
  Sex: Female
  Weight: 59 kg

DRUGS (12)
  1. NEXIUM [Suspect]
     Indication: DYSPEPSIA
     Route: 048
     Dates: start: 20100101
  2. SEROQUEL [Suspect]
     Indication: DEPRESSION
     Route: 048
     Dates: start: 20080101
  3. MORPHINE [Concomitant]
     Indication: PAIN
     Route: 048
     Dates: start: 20090101
  4. MORPHINE FAST ACTING [Concomitant]
     Indication: PAIN
     Route: 048
     Dates: start: 20080101
  5. LAMICTAL [Concomitant]
     Indication: CONVULSION
     Route: 048
     Dates: start: 20110901
  6. PHENERGAN [Concomitant]
     Indication: NAUSEA
     Route: 048
  7. CRESTOR [Suspect]
     Indication: BLOOD CHOLESTEROL INCREASED
     Route: 048
     Dates: start: 20090101
  8. ATIVAN [Concomitant]
     Indication: DEPRESSION
     Route: 048
     Dates: start: 20070101
  9. ATENOLOL [Concomitant]
     Indication: HYPERTENSION
     Route: 048
     Dates: start: 20100101
  10. FIORICET [Concomitant]
     Indication: MIGRAINE
     Dosage: ONE TO TWO TABLET QID
     Route: 048
  11. ASPIRIN [Concomitant]
     Indication: CARDIAC DISORDER
     Route: 048
  12. CARAFATE [Concomitant]
     Dosage: ONE TBSP QID
     Route: 048

REACTIONS (4)
  - OESOPHAGEAL CARCINOMA [None]
  - LOWER LIMB FRACTURE [None]
  - AMNESIA [None]
  - PAIN [None]
